FAERS Safety Report 16210853 (Version 1)
Quarter: 2019Q2

REPORT INFORMATION
  Report Type: Spontaneous
  Country: GB (occurrence: GB)
  Receive Date: 20190418
  Receipt Date: 20190418
  Transmission Date: 20190711
  Serious: Yes (Hospitalization, Other)
  Sender: FDA-Public Use
  Company Number: GB-SA-2017SA204447

PATIENT
  Age: 66 Year
  Sex: Female

DRUGS (2)
  1. PRALUENT [Suspect]
     Active Substance: ALIROCUMAB
     Indication: HYPERCHOLESTEROLAEMIA
     Dosage: 75 MG,QOW
     Route: 058
     Dates: start: 2017
  2. PRALUENT [Suspect]
     Active Substance: ALIROCUMAB
     Dosage: 150 MG, QOW
     Route: 058

REACTIONS (6)
  - Cellulitis [Unknown]
  - Weight decreased [Unknown]
  - Product prescribing error [Unknown]
  - Product dose omission [Unknown]
  - Osteosclerosis [Unknown]
  - Product dispensing error [Unknown]

NARRATIVE: CASE EVENT DATE: 20171011
